FAERS Safety Report 14303953 (Version 1)
Quarter: 2017Q4

REPORT INFORMATION
  Report Type: Spontaneous
  Country: JP (occurrence: JP)
  Receive Date: 20171219
  Receipt Date: 20171219
  Transmission Date: 20180321
  Serious: Yes (Other)
  Sender: FDA-Public Use
  Company Number: JP-OTSUKA-JP-2013-10061

PATIENT
  Age: 71 Year
  Sex: Male
  Weight: 71 kg

DRUGS (29)
  1. SELENICA R [Suspect]
     Active Substance: VALPROATE SODIUM
     Dosage: 400 MG, BID
     Route: 048
     Dates: start: 20121214, end: 20121225
  2. PREDONINE [Concomitant]
     Active Substance: PREDNISOLONE
     Indication: NEPHROTIC SYNDROME
     Dosage: 5 MG, QD
     Route: 048
  3. FLUNITRAZEPAM [Concomitant]
     Active Substance: FLUNITRAZEPAM
     Dosage: TABS
  4. SELENICA R [Suspect]
     Active Substance: VALPROATE SODIUM
     Dosage: 200 MG, BID
     Route: 048
     Dates: start: 20121227, end: 20121227
  5. SELENICA R [Suspect]
     Active Substance: VALPROATE SODIUM
     Dosage: 200 MG, QD
     Route: 048
     Dates: start: 20121228, end: 20130104
  6. CORPADEL [Concomitant]
     Indication: PARKINSONISM
     Dosage: 2.5 MG, TID
     Route: 048
     Dates: start: 20120910, end: 20130104
  7. AMLODIPINE [Concomitant]
     Active Substance: AMLODIPINE BESYLATE
     Indication: HYPERTENSION
     Dosage: 5 MG, QD
     Route: 048
  8. BENZALIN [Concomitant]
     Active Substance: NITRAZEPAM
     Indication: INSOMNIA
     Dosage: 5 MG, QD
     Route: 048
  9. SENNA [Concomitant]
     Active Substance: SENNA LEAF\SENNOSIDES\SENNOSIDES A AND B
     Dosage: TABS
  10. ABILIFY [Suspect]
     Active Substance: ARIPIPRAZOLE
     Dosage: 30 MG, QD
     Route: 048
     Dates: start: 20120914, end: 20121213
  11. SELENICA R [Suspect]
     Active Substance: VALPROATE SODIUM
     Dosage: 600 MG, QD
     Route: 048
     Dates: start: 20121207, end: 20121213
  12. SELENICA R [Suspect]
     Active Substance: VALPROATE SODIUM
     Dosage: 200 MG, TID
     Route: 048
     Dates: start: 20121226, end: 20121226
  13. NEORAL [Concomitant]
     Active Substance: CYCLOSPORINE
     Indication: NEPHROTIC SYNDROME
     Dosage: 50 MG, QD
     Route: 048
  14. LANSOPRAZOLE. [Concomitant]
     Active Substance: LANSOPRAZOLE
     Indication: GASTROOESOPHAGEAL REFLUX DISEASE
     Dosage: 15 MG, QD
     Route: 048
  15. ABILIFY [Suspect]
     Active Substance: ARIPIPRAZOLE
     Dosage: 18 MG, QD
     Route: 048
     Dates: start: 20120910, end: 20120913
  16. ABILIFY [Suspect]
     Active Substance: ARIPIPRAZOLE
     Dosage: 15 MG, BID
     Route: 048
     Dates: start: 20121214, end: 20130104
  17. ABILIFY [Suspect]
     Active Substance: ARIPIPRAZOLE
     Dosage: 12 MG, BID
     Route: 048
     Dates: start: 20130105, end: 20130107
  18. SELENICA-R [Suspect]
     Active Substance: VALPROATE SODIUM
     Indication: ANGER
     Dosage: TABS  7DEC12-13DEC12:600  14DEC12-25DEC12:400  26DEC12,27DEC12,28DEC12-4JAN13:200  DOSES IN MG
     Route: 048
     Dates: start: 2012, end: 20130104
  19. ZYRTEC [Concomitant]
     Active Substance: CETIRIZINE HYDROCHLORIDE
     Indication: CONSTIPATION
     Dosage: 5 MG, QD
     Route: 048
  20. PREDNISOLONE. [Concomitant]
     Active Substance: PREDNISOLONE
  21. BROMOCRIPTINE MESYLATE [Concomitant]
     Active Substance: BROMOCRIPTINE MESYLATE
     Dosage: UNK
     Dates: start: 20120910, end: 20130104
  22. ABILIFY [Suspect]
     Active Substance: ARIPIPRAZOLE
     Dosage: 6 MG, QD
     Route: 048
     Dates: start: 20130111, end: 20130115
  23. SELENICA R [Suspect]
     Active Substance: VALPROATE SODIUM
     Indication: ANGER
     Dosage: 400 MG, QD
     Route: 048
     Dates: start: 2011, end: 20121206
  24. SENNOSIDE [Concomitant]
     Active Substance: SENNOSIDES
     Indication: CONSTIPATION
     Dosage: 36 MG, QD
     Route: 048
  25. ABILIFY [Suspect]
     Active Substance: ARIPIPRAZOLE
     Dosage: 6 MG, BID
     Route: 048
     Dates: start: 20130108, end: 20130110
  26. ROHYPNOL [Concomitant]
     Active Substance: FLUNITRAZEPAM
     Indication: INSOMNIA
     Dosage: 2 MG, QD
     Route: 048
  27. FEBURIC [Concomitant]
     Active Substance: FEBUXOSTAT
     Indication: HYPERURICAEMIA
     Dosage: 20 MG, QD
     Route: 048
     Dates: start: 20121114
  28. ABILIFY [Suspect]
     Active Substance: ARIPIPRAZOLE
     Indication: DELUSION
     Dosage: 6 MG, QD
     Route: 048
     Dates: start: 20120329, end: 20120614
  29. ABILIFY [Suspect]
     Active Substance: ARIPIPRAZOLE
     Dosage: 12 MG, QD
     Route: 048
     Dates: start: 20120615, end: 20120909

REACTIONS (2)
  - Blood glucose decreased [Recovered/Resolved]
  - Carnitine decreased [Unknown]

NARRATIVE: CASE EVENT DATE: 20120906
